FAERS Safety Report 25584358 (Version 2)
Quarter: 2025Q3

REPORT INFORMATION
  Report Type: Spontaneous
  Country: JP (occurrence: JP)
  Receive Date: 20250721
  Receipt Date: 20250730
  Transmission Date: 20251021
  Serious: Yes (Hospitalization, Other)
  Sender: JAZZ
  Company Number: JP-JAZZ PHARMACEUTICALS-2025-JP-017741

PATIENT
  Age: 74 Year
  Sex: Male

DRUGS (7)
  1. VYXEOS [Suspect]
     Active Substance: CYTARABINE\DAUNORUBICIN
     Indication: Acute myeloid leukaemia
  2. VYXEOS [Suspect]
     Active Substance: CYTARABINE\DAUNORUBICIN
  3. VYXEOS [Suspect]
     Active Substance: CYTARABINE\DAUNORUBICIN
  4. VYXEOS [Suspect]
     Active Substance: CYTARABINE\DAUNORUBICIN
  5. VYXEOS [Suspect]
     Active Substance: CYTARABINE\DAUNORUBICIN
  6. VYXEOS [Suspect]
     Active Substance: CYTARABINE\DAUNORUBICIN
  7. VYXEOS [Suspect]
     Active Substance: CYTARABINE\DAUNORUBICIN

REACTIONS (11)
  - Influenza [Unknown]
  - Scrotal oedema [Unknown]
  - Immobilisation syndrome [Unknown]
  - Pyrexia [Recovered/Resolved]
  - Pancytopenia [Unknown]
  - Performance status decreased [Unknown]
  - Anaemia [Unknown]
  - Bone marrow failure [Unknown]
  - Febrile neutropenia [Unknown]
  - Platelet count decreased [Unknown]
  - Neutrophil count decreased [Unknown]
